FAERS Safety Report 19985680 (Version 3)
Quarter: 2022Q1

REPORT INFORMATION
  Report Type: Report from Study
  Country: US (occurrence: US)
  Receive Date: 20211022
  Receipt Date: 20220120
  Transmission Date: 20220423
  Serious: Yes (Hospitalization, Other)
  Sender: FDA-Public Use
  Company Number: US-BOEHRINGERINGELHEIM-2021-BI-110004

PATIENT
  Age: 58 Year
  Sex: Female

DRUGS (8)
  1. OFEV [Suspect]
     Active Substance: NINTEDANIB
     Indication: Systemic scleroderma
     Route: 048
     Dates: start: 20191118
  2. OFEV [Suspect]
     Active Substance: NINTEDANIB
     Indication: Pulmonary arterial hypertension
  3. TYVASO [Suspect]
     Active Substance: TREPROSTINIL
     Indication: Pulmonary arterial hypertension
     Dosage: 300?0.6MG/ML?INHALE 2 BREATHS USING TD 300 DEVICE 4 TIMES DAILY
     Route: 055
  4. TYVASO [Suspect]
     Active Substance: TREPROSTINIL
     Dosage: 2BREATHS 4 TIMES DAILY
  5. TYVASO [Suspect]
     Active Substance: TREPROSTINIL
     Dosage: INHALES 9 BREATHS FOUR TIMES DAILY USING TD-300 DEVICE
     Route: 055
     Dates: start: 20210707
  6. TYVASO [Suspect]
     Active Substance: TREPROSTINIL
     Dosage: 0.6MG/ML 4 BREATHS FOUR TIMES DAILY USING TD 300 DEVICE
     Route: 055
  7. OPSUMIT [Suspect]
     Active Substance: MACITENTAN
     Indication: Pulmonary arterial hypertension
     Route: 048
     Dates: start: 20210528
  8. OPSUMIT [Suspect]
     Active Substance: MACITENTAN
     Indication: Systemic scleroderma

REACTIONS (9)
  - Palpitations [Unknown]
  - Dizziness [Unknown]
  - Interstitial lung disease [Unknown]
  - Pulmonary hypertension [Unknown]
  - Dyspnoea exertional [Unknown]
  - Headache [Not Recovered/Not Resolved]
  - Nausea [Not Recovered/Not Resolved]
  - Diarrhoea [Recovering/Resolving]
  - Off label use [Unknown]
